FAERS Safety Report 12324813 (Version 3)
Quarter: 2018Q3

REPORT INFORMATION
  Report Type: Report from Study
  Country: US (occurrence: US)
  Receive Date: 20160502
  Receipt Date: 20180705
  Transmission Date: 20181010
  Serious: Yes (Other)
  Sender: FDA-Public Use
  Company Number: PHEH2016US010459

PATIENT
  Age: 58 Year
  Sex: Male

DRUGS (1)
  1. ENTRESTO [Suspect]
     Active Substance: SACUBITRIL\VALSARTAN
     Indication: PRODUCT USED FOR UNKNOWN INDICATION
     Dosage: 200 MG, BID
     Route: 048
     Dates: start: 20151010

REACTIONS (6)
  - Cardiac failure [Unknown]
  - Anxiety [Unknown]
  - Intracardiac thrombus [Unknown]
  - Nervousness [Unknown]
  - Wrong technique in product usage process [Unknown]
  - Stress [Unknown]

NARRATIVE: CASE EVENT DATE: 20160424
